FAERS Safety Report 5909231-2 (Version None)
Quarter: 2008Q4

REPORT INFORMATION
  Report Type: 
  Country: None (occurrence: None)
  Receive Date: 20081006
  Receipt Date: 20080930
  Transmission Date: 20090506
  Serious: Yes (Death, Hospitalization)
  Sender: FDA-Public Use
  Company Number: PHHO2008IT11621

PATIENT
  Sex: Male

DRUGS (5)
  1. BASILIXIMAB [Suspect]
     Indication: LIVER TRANSPLANT
     Dosage: DOUBLE BLIND
     Route: 042
     Dates: start: 20080712, end: 20080716
  2. MYCOPHENOLATE MOFETIL [Suspect]
     Indication: LIVER TRANSPLANT
     Dosage: UNK
     Route: 048
     Dates: start: 20080712, end: 20080902
  3. VALGANCICLOVIR HCL [Concomitant]
  4. BACTRIM [Concomitant]
  5. STEROIDS NOS [Concomitant]

REACTIONS (4)
  - BONE MARROW FAILURE [None]
  - PYREXIA [None]
  - STAPHYLOCOCCAL INFECTION [None]
  - STAPHYLOCOCCAL SEPSIS [None]
